FAERS Safety Report 10035074 (Version 2)
Quarter: 2014Q1

REPORT INFORMATION
  Report Type: Report from Study
  Country: US (occurrence: US)
  Receive Date: 20140325
  Receipt Date: 20140325
  Transmission Date: 20141002
  Serious: Yes (Hospitalization, Other)
  Sender: FDA-Public Use
  Company Number: PHHO2013US004050

PATIENT
  Age: 66 Year
  Sex: Female
  Weight: 98.23 kg

DRUGS (6)
  1. ACZ885 [Suspect]
     Indication: CARDIOVASCULAR EVENT PROPHYLAXIS
     Dosage: 300 MG, UNK
     Route: 058
     Dates: start: 20130219
  2. WARFARIN [Concomitant]
     Indication: ATRIAL FIBRILLATION
     Dosage: 4 MG, QD
     Route: 048
     Dates: start: 20110513
  3. METHOTREXATE [Concomitant]
     Indication: PSORIASIS
     Dosage: 5 MG, QW3
     Route: 048
     Dates: start: 201101
  4. PEPCID [Concomitant]
     Indication: GASTROOESOPHAGEAL REFLUX DISEASE
     Dosage: 20 MG, BID
     Dates: start: 20090327
  5. METOPROLOL [Concomitant]
     Indication: HYPERTENSION
     Dosage: 100 MG, QD
     Dates: start: 20120611, end: 20130316
  6. LASIX [Concomitant]
     Indication: HYPERTENSION
     Dosage: 20 MG, QD
     Dates: start: 20090903

REACTIONS (3)
  - Adenocarcinoma of colon [Not Recovered/Not Resolved]
  - Hypertension [Recovered/Resolved]
  - Non-cardiac chest pain [Recovered/Resolved]
